FAERS Safety Report 8274290-1 (Version None)
Quarter: 2012Q2

REPORT INFORMATION
  Report Type: 
  Country: None (occurrence: None)
  Receive Date: 20120411
  Receipt Date: 20120411
  Transmission Date: 20120825
  Serious: Yes (Hospitalization)
  Sender: FDA-Public Use
  Company Number: None

PATIENT
  Age: 35 Year
  Sex: Female
  Weight: 47.627 kg

DRUGS (2)
  1. NUVARING [Suspect]
     Indication: MENORRHAGIA
     Dosage: 1 RING
     Route: 067
     Dates: start: 20120307, end: 20120318
  2. NUVARING [Suspect]
     Indication: DYSMENORRHOEA
     Dosage: 1 RING
     Route: 067
     Dates: start: 20120307, end: 20120318

REACTIONS (10)
  - PYREXIA [None]
  - ABDOMINAL PAIN [None]
  - DECREASED APPETITE [None]
  - DIZZINESS [None]
  - PANIC ATTACK [None]
  - NAUSEA [None]
  - SYNCOPE [None]
  - HEADACHE [None]
  - GASTROENTERITIS VIRAL [None]
  - DIARRHOEA [None]
